FAERS Safety Report 15686573 (Version 2)
Quarter: 2018Q4

REPORT INFORMATION
  Report Type: Report from Study
  Country: CA (occurrence: CA)
  Receive Date: 20181204
  Receipt Date: 20181211
  Transmission Date: 20190205
  Serious: Yes (Other)
  Sender: FDA-Public Use
  Company Number: CA-JNJFOC-20181139922

PATIENT
  Sex: Female
  Weight: 72.57 kg

DRUGS (2)
  1. STELARA [Suspect]
     Active Substance: USTEKINUMAB
     Indication: CROHN^S DISEASE
     Dosage: STRENGTH = 90 MG
     Route: 058
     Dates: start: 20171227
  2. PENCILLIN [Suspect]
     Active Substance: PENICILLIN
     Indication: BACTERIAL INFECTION
     Route: 065
     Dates: start: 20181023, end: 20181107

REACTIONS (4)
  - Diarrhoea [Unknown]
  - Abdominal pain [Unknown]
  - Weight increased [Unknown]
  - Gastritis bacterial [Recovered/Resolved]

NARRATIVE: CASE EVENT DATE: 2018
